FAERS Safety Report 4471511-8 (Version None)
Quarter: 2004Q4

REPORT INFORMATION
  Report Type: 
  Country: None (occurrence: None)
  Receive Date: 20041007
  Receipt Date: 20040922
  Transmission Date: 20050328
  Serious: Yes (Hospitalization)
  Sender: FDA-Public Use
  Company Number: 2004-BP-08494BP (0)

PATIENT
  Age: 76 Year
  Sex: Female

DRUGS (14)
  1. SPIRIVA [Suspect]
     Indication: CHRONIC OBSTRUCTIVE AIRWAYS DISEASE
     Dosage: 18 MCG (18 MCG) ,IH
     Route: 055
     Dates: start: 20040708, end: 20040711
  2. CELEXA [Concomitant]
  3. SYNTHROID [Concomitant]
  4. BUSPIRONE [Concomitant]
  5. AVAPRO [Concomitant]
  6. CARDIZEM LA (DILTIAZEM HYDROCHLORIDE) [Concomitant]
  7. ACETYLSALICYLIC ACID SRT [Concomitant]
  8. SINGULAIR [Concomitant]
  9. MOBIC [Concomitant]
  10. GUAIFENESIN [Concomitant]
  11. ULTRACET [Concomitant]
  12. NEXIUM [Concomitant]
  13. LIPITOR [Concomitant]
  14. ACTONEL [Concomitant]

REACTIONS (8)
  - APHASIA [None]
  - CARDIAC DISORDER [None]
  - CEREBROVASCULAR ACCIDENT [None]
  - FEELING ABNORMAL [None]
  - SINUSITIS [None]
  - SPEECH DISORDER [None]
  - SYNCOPE [None]
  - TRANSIENT ISCHAEMIC ATTACK [None]
